FAERS Safety Report 24537968 (Version 1)
Quarter: 2024Q4

REPORT INFORMATION
  Report Type: Spontaneous
  Country: ES (occurrence: ES)
  Receive Date: 20241023
  Receipt Date: 20241023
  Transmission Date: 20250115
  Serious: Yes (Other)
  Sender: ESPERION THERAPEUTICS
  Company Number: None

PATIENT
  Age: 86 Year
  Sex: Male

DRUGS (1)
  1. BEMPEDOIC ACID\EZETIMIBE [Suspect]
     Active Substance: BEMPEDOIC ACID\EZETIMIBE
     Indication: Acute myocardial infarction
     Dosage: 1 DOSAGE FORM, QD (BEMPOIC 180/EZETIMIBE 10 MG ONE TABLET PER DAY)
     Route: 048
     Dates: start: 20240703, end: 20240924

REACTIONS (2)
  - Drug-induced liver injury [Recovering/Resolving]
  - Off label use [Recovered/Resolved]

NARRATIVE: CASE EVENT DATE: 20240703
